FAERS Safety Report 9001696 (Version 1)
Quarter: 2013Q1

REPORT INFORMATION
  Report Type: Spontaneous
  Country: US (occurrence: US)
  Receive Date: 20130107
  Receipt Date: 20130107
  Transmission Date: 20140127
  Serious: No
  Sender: FDA-Public Use
  Company Number: US-ASTELLAS-2012US012819

PATIENT
  Age: 72 Year
  Sex: Male

DRUGS (1)
  1. MYRBETRIQ [Suspect]
     Indication: PRODUCT USED FOR UNKNOWN INDICATION
     Dosage: 25 MG SPLIT IN HALF, UNKNOWN/D
     Route: 048
     Dates: start: 201212

REACTIONS (1)
  - Wrong technique in drug usage process [Unknown]
